FAERS Safety Report 5844915-6 (Version None)
Quarter: 2008Q3

REPORT INFORMATION
  Report Type: 
  Country: None (occurrence: None)
  Receive Date: 20080814
  Receipt Date: 20080807
  Transmission Date: 20090109
  Serious: Yes (Other)
  Sender: FDA-Public Use
  Company Number: US-KINGPHARMUSA00001-K200800645

PATIENT

DRUGS (6)
  1. ALTACE [Suspect]
     Indication: MYOCARDIAL INFARCTION
     Dosage: UNK, UNK
     Route: 048
     Dates: start: 20070116, end: 20070810
  2. PLAVIX [Suspect]
     Indication: MYOCARDIAL INFARCTION
     Dosage: 75 MG, QD
     Route: 048
     Dates: start: 20070116, end: 20070810
  3. PLAVIX [Suspect]
     Dosage: 75 MG, QD
     Route: 048
     Dates: start: 20070814
  4. CRESTOR [Suspect]
     Route: 048
     Dates: start: 20070116, end: 20070810
  5. METOPROLOL SUCCINATE [Suspect]
     Route: 048
     Dates: start: 20070116, end: 20070810
  6. ACETYLSALICYLIC ACID SRT [Suspect]
     Indication: MYOCARDIAL INFARCTION
     Dosage: 81 MG, QD
     Route: 048
     Dates: start: 20070116

REACTIONS (2)
  - ABORTION SPONTANEOUS [None]
  - DRUG EXPOSURE DURING PREGNANCY [None]
